FAERS Safety Report 10745161 (Version 2)
Quarter: 2015Q2

REPORT INFORMATION
  Report Type: Spontaneous
  Country: US (occurrence: None)
  Receive Date: 20150120
  Receipt Date: 20150420
  Transmission Date: 20150821
  Serious: No
  Sender: FDA-Public Use
  Company Number: AEGR000908

PATIENT
  Age: 60 Year
  Sex: Male

DRUGS (9)
  1. JUXTAPID [Suspect]
     Active Substance: LOMITAPIDE MESYLATE
     Indication: TYPE IIA HYPERLIPIDAEMIA
     Dates: start: 201404
  2. ZETIA [Concomitant]
     Active Substance: EZETIMIBE
  3. VITAMIN D (COLECALCIFEROL) [Concomitant]
  4. TOPROL (METOPROLOL SUCCINATE) [Concomitant]
  5. OMEPRAZOLE. [Concomitant]
     Active Substance: OMEPRAZOLE
  6. FISH OIL (COD-LIVER OIL) [Concomitant]
  7. IMDUR (ISOSORBIDE MONONITRATE) [Concomitant]
  8. ASPIRIN. [Concomitant]
     Active Substance: ASPIRIN
  9. TRAMADOL (TRAMADOL HYDROCHLORIDE) [Concomitant]
     Active Substance: TRAMADOL HYDROCHLORIDE

REACTIONS (2)
  - Hepatic enzyme increased [None]
  - Product used for unknown indication [None]

NARRATIVE: CASE EVENT DATE: 20140519
